FAERS Safety Report 9602231 (Version 3)
Quarter: 2013Q4

REPORT INFORMATION
  Report Type: Spontaneous
  Country: US (occurrence: US)
  Receive Date: 20131007
  Receipt Date: 20131101
  Transmission Date: 20140711
  Serious: No
  Sender: FDA-Public Use
  Company Number: US-AMGEN-USASP2013066746

PATIENT
  Age: 81 Year
  Sex: Female

DRUGS (1)
  1. PROLIA [Suspect]
     Indication: OSTEOPOROSIS POSTMENOPAUSAL
     Dosage: 60 MG, Q6MO
     Route: 058
     Dates: start: 20121012

REACTIONS (12)
  - Oedema [Unknown]
  - Pruritus [Not Recovered/Not Resolved]
  - Seborrhoeic keratosis [Unknown]
  - Lentigo [Unknown]
  - Haemangioma [Unknown]
  - Keloid scar [Unknown]
  - Cyst [Unknown]
  - Papule [Unknown]
  - Inflammation [Unknown]
  - Seborrhoeic dermatitis [Unknown]
  - Dermatitis [Unknown]
  - Rash [Unknown]
